FAERS Safety Report 14667791 (Version 6)
Quarter: 2018Q3

REPORT INFORMATION
  Report Type: Spontaneous
  Country: US (occurrence: US)
  Receive Date: 20180322
  Receipt Date: 20180913
  Transmission Date: 20181010
  Serious: No
  Sender: FDA-Public Use
  Company Number: US-PFIZER INC-2018118164

PATIENT
  Age: 65 Year
  Sex: Female

DRUGS (1)
  1. BOSULIF [Suspect]
     Active Substance: BOSUTINIB MONOHYDRATE
     Dosage: 400 MG, 1X/DAY
     Route: 048
     Dates: start: 20180313

REACTIONS (6)
  - Arthralgia [Recovering/Resolving]
  - Cough [Unknown]
  - Loss of personal independence in daily activities [Recovered/Resolved]
  - Insomnia [Not Recovered/Not Resolved]
  - Malaise [Unknown]
  - Discomfort [Unknown]

NARRATIVE: CASE EVENT DATE: 2018
